FAERS Safety Report 9807634 (Version 2)
Quarter: 2014Q1

REPORT INFORMATION
  Report Type: Spontaneous
  Country: ES (occurrence: ES)
  Receive Date: 20140110
  Receipt Date: 20140117
  Transmission Date: 20141002
  Serious: Yes (Other)
  Sender: FDA-Public Use
  Company Number: ES-OTSUKA-EU-2014-10002

PATIENT
  Sex: 0

DRUGS (6)
  1. PLETAL [Suspect]
     Indication: ARTERIAL DISORDER
     Dosage: 100 MG MILLIGRAM(S), BID
     Route: 048
     Dates: start: 20100308, end: 20131119
  2. PENTOXIFILINA [Concomitant]
     Dosage: UNK
     Dates: start: 2002, end: 2010
  3. ADIRO [Concomitant]
  4. ENALAPRILHYDROCHLOROTHIAZIDE [Concomitant]
  5. SITAGLIPTIN METFORMIN [Concomitant]
  6. SIMVASTATIN [Concomitant]

REACTIONS (3)
  - Presyncope [Recovered/Resolved]
  - Loss of consciousness [Recovered/Resolved]
  - Bundle branch block right [Unknown]
